FAERS Safety Report 5088709-0 (Version None)
Quarter: 2006Q3

REPORT INFORMATION
  Report Type: 
  Country: None (occurrence: None)
  Receive Date: 20060822
  Receipt Date: 20060804
  Transmission Date: 20061208
  Serious: Yes (Hospitalization)
  Sender: FDA-Public Use
  Company Number: GB200608001106

PATIENT
  Age: 50 Year
  Sex: Male

DRUGS (2)
  1. FLUOXETINE HCL [Suspect]
     Indication: DEPRESSION
     Dosage: 20 MG, DAILY (1/D), ORAL
     Route: 048
     Dates: start: 20060530, end: 20060620
  2. IBUPROFEN [Concomitant]

REACTIONS (4)
  - DUODENAL ULCER [None]
  - GASTRITIS EROSIVE [None]
  - HAEMATEMESIS [None]
  - MELAENA [None]
